FAERS Safety Report 9848292 (Version 1)
Quarter: 2014Q1

REPORT INFORMATION
  Report Type: Spontaneous
  Country: US (occurrence: None)
  Receive Date: 20140117
  Receipt Date: 20140117
  Transmission Date: 20141002
  Serious: Yes (Death)
  Sender: FDA-Public Use
  Company Number: B0958658A

PATIENT
  Age: 35 Year
  Sex: Male

DRUGS (5)
  1. PAROXETINE HYDROCHLORIDE [Suspect]
  2. OXYMORPHONE HYDROCHLORIDE [Suspect]
  3. BENZTROPINE [Suspect]
  4. FLUOXETINE (FLUOXETINE) [Suspect]
  5. CITALOPRAM (CITALOPRAM) [Suspect]

REACTIONS (1)
  - Intentional drug misuse [None]
